FAERS Safety Report 5290492-0 (Version None)
Quarter: 2007Q2

REPORT INFORMATION
  Report Type: 
  Country: None (occurrence: None)
  Receive Date: 20070405
  Receipt Date: 20070405
  Transmission Date: 20071010
  Serious: Yes (Hospitalization)
  Sender: FDA-Public Use
  Company Number: None

PATIENT
  Sex: Female
  Weight: 84.369 kg

DRUGS (7)
  1. AZATHIOPRINE [Suspect]
     Indication: CROHN'S DISEASE
     Dosage: DAILY PO
     Route: 048
     Dates: start: 20070220, end: 20070401
  2. PREDNISONE [Concomitant]
  3. DILTIAZEM [Concomitant]
  4. ESTRADIOL [Concomitant]
  5. ZOLPIDEM [Concomitant]
  6. ATORVASTATIN CALCIUM [Concomitant]
  7. NITROGLYCERIN [Concomitant]

REACTIONS (1)
  - PANCREATITIS [None]
